FAERS Safety Report 7342091-4 (Version None)
Quarter: 2011Q1

REPORT INFORMATION
  Report Type: 
  Country: None (occurrence: None)
  Receive Date: 20110309
  Receipt Date: 20110307
  Transmission Date: 20110831
  Serious: Yes (Hospitalization)
  Sender: FDA-Public Use
  Company Number: JP-ABBOTT-11P-087-0709671-00

PATIENT
  Sex: Female

DRUGS (5)
  1. KLARICID TABLETS [Suspect]
     Indication: NASOPHARYNGITIS
     Route: 048
     Dates: start: 20110222, end: 20110226
  2. TIPEPIDINE HIBENZATE [Concomitant]
     Indication: NASOPHARYNGITIS
     Route: 048
     Dates: start: 20110222, end: 20110226
  3. TEPRENONE [Concomitant]
     Indication: PRODUCT USED FOR UNKNOWN INDICATION
     Route: 048
     Dates: start: 20110222
  4. MUCODYNE [Concomitant]
     Indication: PRODUCT USED FOR UNKNOWN INDICATION
     Route: 048
     Dates: start: 20110222, end: 20110226
  5. FEXOFENADINE HCL [Concomitant]
     Indication: PRODUCT USED FOR UNKNOWN INDICATION
     Route: 048
     Dates: start: 20110222

REACTIONS (4)
  - TOXIC SKIN ERUPTION [None]
  - PRURITUS [None]
  - GENERALISED ERYTHEMA [None]
  - URTICARIA [None]
